FAERS Safety Report 5746054-1 (Version None)
Quarter: 2008Q2

REPORT INFORMATION
  Report Type: 
  Country: None (occurrence: None)
  Receive Date: 20080522
  Receipt Date: 20080514
  Transmission Date: 20081010
  Serious: Yes (Other)
  Sender: FDA-Public Use
  Company Number: US-JNJFOC-20080303290

PATIENT
  Sex: Female
  Weight: 112.04 kg

DRUGS (12)
  1. DOXIL [Suspect]
     Indication: UTERINE CANCER
     Route: 042
  2. AMIODIPINE [Concomitant]
     Route: 065
  3. COMPAZINE [Concomitant]
     Route: 065
  4. SIMVASTATIN [Concomitant]
     Route: 065
  5. RIPLIVA [Concomitant]
     Route: 065
  6. ZANTAC [Concomitant]
     Route: 065
  7. METOPROLOL TARTRATE [Concomitant]
     Route: 065
  8. HYDROCLORTHIAZIDE [Concomitant]
     Route: 065
  9. BENADRYL [Concomitant]
     Indication: PREMEDICATION
     Route: 042
  10. DECADRON [Concomitant]
     Indication: PREMEDICATION
     Route: 042
  11. ZANTAC [Concomitant]
     Indication: PREMEDICATION
     Route: 042
  12. ALOXI [Concomitant]
     Indication: PREMEDICATION
     Route: 042

REACTIONS (1)
  - HYPERSENSITIVITY [None]
